FAERS Safety Report 7966399-4 (Version None)
Quarter: 2011Q4

REPORT INFORMATION
  Report Type: 
  Country: None (occurrence: None)
  Receive Date: 20111208
  Receipt Date: 20111129
  Transmission Date: 20120403
  Serious: Yes (Death, Hospitalization)
  Sender: FDA-Public Use
  Company Number: US-MPIJNJ-2011-06030

PATIENT
  Age: 73 Year
  Sex: Female
  Weight: 54.422 kg

DRUGS (1)
  1. VELCADE [Suspect]
     Indication: MULTIPLE MYELOMA
     Dosage: 2.5 MG, UNK
     Route: 042
     Dates: start: 20100118, end: 20100319

REACTIONS (4)
  - RENAL FAILURE CHRONIC [None]
  - METABOLIC ENCEPHALOPATHY [None]
  - MENTAL STATUS CHANGES [None]
  - URINARY TRACT INFECTION [None]
